FAERS Safety Report 9261126 (Version 1)
Quarter: 2013Q2

REPORT INFORMATION
  Report Type: Spontaneous
  Country: NL (occurrence: NL)
  Receive Date: 20130429
  Receipt Date: 20130429
  Transmission Date: 20140414
  Serious: Yes (Other)
  Sender: FDA-Public Use
  Company Number: PHHY2013NL029661

PATIENT
  Sex: Male

DRUGS (10)
  1. GILENYA [Suspect]
     Route: 048
     Dates: start: 201203
  2. NITROFURANTOIN [Concomitant]
  3. GABAPENTINE [Concomitant]
  4. OXYCODON [Concomitant]
  5. FURABID [Concomitant]
  6. RISEDRONATE SODIUM [Concomitant]
  7. MOLAXOLE [Concomitant]
  8. IBUPROFEN [Concomitant]
  9. CARBAMAZEPINE [Concomitant]
  10. CIALIS [Concomitant]

REACTIONS (6)
  - Gallbladder disorder [Unknown]
  - Hepatic enzyme increased [Recovered/Resolved]
  - Gamma-glutamyltransferase increased [Recovered/Resolved]
  - Scrotal pain [Unknown]
  - Abdominal pain [Unknown]
  - Leukopenia [Unknown]
